FAERS Safety Report 18581430 (Version 1)
Quarter: 2020Q4

REPORT INFORMATION
  Report Type: Spontaneous
  Country: ES (occurrence: ES)
  Receive Date: 20201204
  Receipt Date: 20201204
  Transmission Date: 20210114
  Serious: Yes (Hospitalization)
  Sender: FDA-Public Use
  Company Number: ES-MYLANLABS-2020M1100540

PATIENT
  Age: 49 Year
  Sex: Male
  Weight: 65 kg

DRUGS (6)
  1. OXALIPLATIN. [Suspect]
     Active Substance: OXALIPLATIN
     Indication: GASTRIC CANCER
     Dosage: 148 MILLIGRAM, CYCLE (ONCE EVERY TWO WEEKS)
     Route: 042
     Dates: start: 20200624
  2. AVELUMAB [Concomitant]
     Active Substance: AVELUMAB
     Dosage: 650 MILLIGRAM, CYCLE (ONCE EVERY TWO WEEKS)
     Route: 042
     Dates: start: 20200806
  3. AVELUMAB [Concomitant]
     Active Substance: AVELUMAB
     Indication: GASTRIC CANCER
     Dosage: 650 MILLIGRAM, CYCLE (ONCE EVERY TWO WEEKS)
     Route: 042
     Dates: start: 20200624
  4. DOCETAXEL. [Suspect]
     Active Substance: DOCETAXEL
     Indication: GASTRIC CANCER
     Dosage: 87 MILLIGRAM, CYCLE (ONCE EVERY TWO WEEKS)
     Route: 042
     Dates: start: 20200624
  5. FLUOROURACIL. [Suspect]
     Active Substance: FLUOROURACIL
     Indication: GASTRIC CANCER
     Dosage: 4550 MILLIGRAM, CYCLE (ONCE EVERY TWO WEEKS)
     Route: 042
     Dates: start: 20200624
  6. LEUCOVORIN                         /00566702/ [Suspect]
     Active Substance: LEUCOVORIN
     Indication: GASTRIC CANCER
     Dosage: 700 MILLIGRAM, CYCLE (ONCE EVERY TWO WEEKS)
     Route: 042
     Dates: start: 20200623

REACTIONS (1)
  - Device related infection [Recovered/Resolved]

NARRATIVE: CASE EVENT DATE: 20200818
